FAERS Safety Report 4423812-7 (Version None)
Quarter: 2004Q3

REPORT INFORMATION
  Report Type: 
  Country: None (occurrence: None)
  Receive Date: 20040714
  Receipt Date: 20031118
  Transmission Date: 20050211
  Serious: Yes (Hospitalization)
  Sender: FDA-Public Use
  Company Number: 6174

PATIENT
  Age: 35 Year
  Sex: Female

DRUGS (3)
  1. SEPTOCAINE [Suspect]
     Indication: DENTAL OPERATION
     Dosage: INJECTABLE
  2. SEPTOCAINE [Suspect]
     Indication: LOCAL ANAESTHESIA
     Dosage: INJECTABLE
  3. TYLOX [Concomitant]

REACTIONS (1)
  - HYPERSENSITIVITY [None]
